FAERS Safety Report 4708017-4 (Version None)
Quarter: 2005Q3

REPORT INFORMATION
  Report Type: 
  Country: None (occurrence: None)
  Receive Date: 20050705
  Receipt Date: 20050705
  Transmission Date: 20060218
  Serious: Yes (Disabling, Other)
  Sender: FDA-Public Use
  Company Number: None

PATIENT
  Age: 32 Year
  Sex: Male
  Weight: 99.7913 kg

DRUGS (2)
  1. RISPERDAL [Suspect]
     Dosage: ONCE EVERY 2 WKS IN MY HIP  MOUTH AND DAILY
  2. ZYPREXA [Suspect]

REACTIONS (8)
  - ARTHRALGIA [None]
  - DEHYDRATION [None]
  - GINGIVAL INJURY [None]
  - HAIR DISORDER [None]
  - HYPOAESTHESIA [None]
  - INSOMNIA [None]
  - NAIL DISORDER [None]
  - SKIN DISORDER [None]
